FAERS Safety Report 8130919 (Version 2)
Quarter: 2016Q2

REPORT INFORMATION
  Report Type: Report from Study
  Country: LB (occurrence: LB)
  Receive Date: 20110912
  Receipt Date: 20160509
  Transmission Date: 20160815
  Serious: Yes (Death)
  Sender: FDA-Public Use
  Company Number: LB-SANOFI-AVENTIS-2011SA054899

PATIENT
  Age: 55 Year
  Sex: Female
  Weight: 60 kg

DRUGS (18)
  1. LEUCOVORIN. [Suspect]
     Active Substance: LEUCOVORIN
     Indication: COLORECTAL CANCER
     Route: 065
     Dates: start: 20110817, end: 20110817
  2. TRIFLUOPERAZINE [Concomitant]
     Active Substance: TRIFLUOPERAZINE\TRIFLUOPERAZINE HYDROCHLORIDE
  3. CONCOR [Concomitant]
     Active Substance: BISOPROLOL FUMARATE
  4. XELODA [Suspect]
     Active Substance: CAPECITABINE
     Indication: COLORECTAL CANCER
     Route: 048
     Dates: start: 20110616
  5. ELOXATIN [Suspect]
     Active Substance: OXALIPLATIN
     Indication: COLORECTAL CANCER
     Route: 042
     Dates: start: 20110616, end: 20110616
  6. 5-FU [Suspect]
     Active Substance: FLUOROURACIL
     Indication: COLORECTAL CANCER
     Route: 042
     Dates: start: 20110616, end: 20110616
  7. 5-FU [Suspect]
     Active Substance: FLUOROURACIL
     Indication: COLORECTAL CANCER
     Route: 040
     Dates: start: 20110817, end: 20110817
  8. 5-FU [Suspect]
     Active Substance: FLUOROURACIL
     Indication: COLORECTAL CANCER
     Dosage: FORM:CONTINUOUS INFUSION
     Dates: start: 20110817, end: 20110817
  9. AVASTIN [Suspect]
     Active Substance: BEVACIZUMAB
     Indication: COLORECTAL CANCER
     Dates: start: 20110817, end: 20110817
  10. TRIPTIZOL [Concomitant]
     Active Substance: AMITRIPTYLINE HYDROCHLORIDE
  11. 5-FU [Suspect]
     Active Substance: FLUOROURACIL
     Indication: COLORECTAL CANCER
     Route: 048
     Dates: start: 20110817, end: 20110817
  12. SINTROM [Concomitant]
     Active Substance: ACENOCOUMAROL
  13. BENZHEXOL [Concomitant]
     Active Substance: TRIHEXYPHENIDYL
  14. LEXOTANIL [Concomitant]
     Active Substance: BROMAZEPAM
  15. ELOXATIN [Suspect]
     Active Substance: OXALIPLATIN
     Indication: COLORECTAL CANCER
     Route: 042
  16. ELOXATIN [Suspect]
     Active Substance: OXALIPLATIN
     Indication: COLORECTAL CANCER
     Route: 042
     Dates: start: 20110817, end: 20110817
  17. 5-FU [Suspect]
     Active Substance: FLUOROURACIL
     Indication: COLORECTAL CANCER
     Route: 042
  18. AVASTIN [Suspect]
     Active Substance: BEVACIZUMAB
     Indication: COLORECTAL CANCER
     Dates: start: 20110616, end: 20110616

REACTIONS (1)
  - Sudden death [Fatal]

NARRATIVE: CASE EVENT DATE: 20110821
